FAERS Safety Report 9639177 (Version 1)
Quarter: 2013Q4

REPORT INFORMATION
  Report Type: Spontaneous
  Country: US (occurrence: None)
  Receive Date: 20131021
  Receipt Date: 20131021
  Transmission Date: 20140711
  Serious: Yes (Death)
  Sender: FDA-Public Use
  Company Number: 2013AP009135

PATIENT
  Age: 41 Year
  Sex: Male
  Weight: 71.2 kg

DRUGS (1)
  1. FERRIPROX [Suspect]
     Indication: THALASSAEMIA
     Route: 048
     Dates: start: 20111215, end: 20130912

REACTIONS (1)
  - Death [None]
